FAERS Safety Report 8077636-2 (Version None)
Quarter: 2012Q1

REPORT INFORMATION
  Report Type: 
  Country: None (occurrence: None)
  Receive Date: 20120127
  Receipt Date: 20120119
  Transmission Date: 20120608
  Serious: Yes (Other)
  Sender: FDA-Public Use
  Company Number: GB-PFIZER INC-2011291697

PATIENT
  Age: 61 Year
  Sex: Male
  Weight: 84 kg

DRUGS (6)
  1. FLUOXETINE [Concomitant]
     Dosage: 20 MG, 1X/DAY
  2. ACETAMINOPHEN AND CODEINE PHOSPHATE [Concomitant]
  3. ATORVASTATIN [Concomitant]
  4. ADCAL-D3 [Concomitant]
     Dosage: 1 DF, 2X/DAY
     Route: 048
  5. ATENOLOL [Concomitant]
     Dosage: 50 MG, 1X/DAY
  6. CELEBREX [Suspect]
     Dosage: 200 MG, 2X/DAY
     Route: 048
     Dates: start: 20110101

REACTIONS (1)
  - PSORIASIS [None]
